FAERS Safety Report 10262997 (Version 2)
Quarter: 2014Q2

REPORT INFORMATION
  Report Type: Report from Study
  Country: US (occurrence: US)
  Receive Date: 20140626
  Receipt Date: 20140626
  Transmission Date: 20141212
  Serious: Yes (Death)
  Sender: FDA-Public Use
  Company Number: US-MYLANLABS-2013S1025565

PATIENT
  Age: 51 Year
  Sex: Male
  Weight: 112.49 kg

DRUGS (5)
  1. CLOZAPINE TABLETS [Suspect]
     Indication: SCHIZOPHRENIA, PARANOID TYPE
     Route: 048
     Dates: end: 2013
  2. CLOZAPINE TABLETS [Suspect]
     Indication: SCHIZOPHRENIA, PARANOID TYPE
     Route: 048
  3. DEPAKOTE [Concomitant]
  4. TRAZODONE [Concomitant]
  5. PAXIL /00830802/ [Concomitant]

REACTIONS (1)
  - Death [Fatal]
